FAERS Safety Report 14100730 (Version 1)
Quarter: 2017Q4

REPORT INFORMATION
  Report Type: Spontaneous
  Country: IE (occurrence: IE)
  Receive Date: 20171018
  Receipt Date: 20171018
  Transmission Date: 20180321
  Serious: Yes (Other)
  Sender: FDA-Public Use
  Company Number: IE-KADMON PHARMACEUTICALS, LLC-KAD-201710-00981

PATIENT
  Age: 55 Year
  Sex: Male

DRUGS (12)
  1. RIBAVIRIN. [Suspect]
     Active Substance: RIBAVIRIN
     Indication: HEPATITIS C
     Dosage: FILM-COATED TABLET; 400 MG AM AND 200 MG PM DAILY REDUCED OVER TIME TO 200 MG DAILY
     Route: 048
     Dates: start: 20170517, end: 20170809
  2. AMITRIPTHYLINE [Concomitant]
     Indication: NEURALGIA
     Route: 048
  3. OXYCONTIN [Concomitant]
     Active Substance: OXYCODONE HYDROCHLORIDE
     Indication: PAIN
     Dosage: PROLONGED-RELEASE TABLET
  4. SOVALDI [Suspect]
     Active Substance: SOFOSBUVIR
     Indication: HEPATITIS C
     Dosage: FILM-COATED TABLET
     Route: 048
     Dates: start: 20170517, end: 20170809
  5. LEXAPRO [Concomitant]
     Active Substance: ESCITALOPRAM OXALATE
     Indication: DEPRESSION
     Dosage: FILM-COATED TABLET
  6. DUROGESIC DTRANS [Concomitant]
     Active Substance: FENTANYL
     Indication: PAIN
     Dosage: TRANSDERMAL PATCH; EVERY 72 HOURS
  7. LYRICA [Concomitant]
     Active Substance: PREGABALIN
     Indication: NEURALGIA
     Dosage: CAPSULE, HARD
  8. NEXIUM [Concomitant]
     Active Substance: ESOMEPRAZOLE MAGNESIUM
     Indication: OESOPHAGITIS
     Dosage: GASTRO-RESISTANT TABLET
  9. WARFARIN [Concomitant]
     Active Substance: WARFARIN
     Indication: HEPATIC ARTERY THROMBOSIS
  10. PROGRAF [Concomitant]
     Active Substance: TACROLIMUS\TACROLIMUS ANHYDROUS
     Indication: LIVER TRANSPLANT
     Dosage: CAPSULE, HARD
     Dates: start: 20070101
  11. DAKLINZA [Suspect]
     Active Substance: DACLATASVIR
     Indication: HEPATITIS C
     Dosage: FILM-COATED TABLET
     Route: 048
     Dates: start: 20170517, end: 20170809
  12. CELLCEPT [Concomitant]
     Active Substance: MYCOPHENOLATE MOFETIL\MYCOPHENOLATE MOFETIL HYDROCHLORIDE
     Indication: LIVER TRANSPLANT
     Dosage: CAPSULE
     Dates: start: 20070101

REACTIONS (1)
  - Platelet count increased [Recovered/Resolved]

NARRATIVE: CASE EVENT DATE: 20170530
